FAERS Safety Report 11873248 (Version 1)
Quarter: 2015Q4

REPORT INFORMATION
  Report Type: Spontaneous
  Country: FR (occurrence: FR)
  Receive Date: 20151228
  Receipt Date: 20151228
  Transmission Date: 20160305
  Serious: Yes (Other)
  Sender: FDA-Public Use
  Company Number: FR-SA-2015SA215876

PATIENT
  Age: 15 Year
  Sex: Male

DRUGS (8)
  1. DEXAMETHASONE. [Suspect]
     Active Substance: DEXAMETHASONE
     Route: 042
     Dates: start: 20151027, end: 20151027
  2. ETOPOSIDE. [Suspect]
     Active Substance: ETOPOSIDE
     Indication: OSTEOSARCOMA
     Dosage: FORM-SOLUTION TO BE DILUTE FOR INFUSION?ROUT-INTRVAENOUS INFUSION
     Dates: start: 20151001, end: 20151004
  3. FOLINIC ACID [Suspect]
     Active Substance: LEUCOVORIN
     Route: 065
     Dates: start: 20151028
  4. PLITICAN [Suspect]
     Active Substance: ALIZAPRIDE HYDROCHLORIDE
     Route: 042
     Dates: start: 20151027, end: 20151027
  5. LOVENOX [Suspect]
     Active Substance: ENOXAPARIN SODIUM
     Route: 065
     Dates: start: 20151026
  6. METHOTREXATE [Suspect]
     Active Substance: METHOTREXATE
     Indication: OSTEOSARCOMA
     Route: 042
     Dates: start: 20150910, end: 20151027
  7. ZOPHREN [Suspect]
     Active Substance: ONDANSETRON
     Dosage: ROUTE-INTRAVENOUS INFUSION
     Dates: start: 20151027
  8. IFOSFAMIDE. [Suspect]
     Active Substance: IFOSFAMIDE
     Dosage: FORM-SOLUTION FOR INFUSION
     Route: 065
     Dates: start: 20151001, end: 20151004

REACTIONS (3)
  - Encephalopathy [Recovering/Resolving]
  - Confusional state [Recovered/Resolved]
  - Persecutory delusion [Recovered/Resolved]

NARRATIVE: CASE EVENT DATE: 20151027
